FAERS Safety Report 8997114 (Version 3)
Quarter: 2013Q2

REPORT INFORMATION
  Report Type: Report from Study
  Country: CA (occurrence: CA)
  Receive Date: 20130104
  Receipt Date: 20130625
  Transmission Date: 20140414
  Serious: Yes (Disabling)
  Sender: FDA-Public Use
  Company Number: PHHY2012CA118034

PATIENT
  Age: 63 Year
  Sex: Male

DRUGS (2)
  1. GLEEVEC [Suspect]
     Indication: GASTROINTESTINAL CANCER METASTATIC
     Dosage: 600 MG, QD
     Route: 048
     Dates: start: 201008
  2. IBUPROFEN [Concomitant]
     Dosage: UNK UKN, PRN

REACTIONS (4)
  - Muscle atrophy [Recovering/Resolving]
  - Neuropathy peripheral [Recovering/Resolving]
  - Muscular weakness [Recovering/Resolving]
  - Dysgeusia [Unknown]
